FAERS Safety Report 8643197 (Version 6)
Quarter: 2012Q4

REPORT INFORMATION
  Report Type: Report from Study
  Country: BR (occurrence: BR)
  Receive Date: 20120629
  Receipt Date: 20121029
  Transmission Date: 20130627
  Serious: Yes (Death, Life-Threatening, Hospitalization, Disabling)
  Sender: FDA-Public Use
  Company Number: BR-JNJFOC-20120613332

PATIENT
  Age: 51 Year
  Sex: Male
  Weight: 64.4 kg

DRUGS (4)
  1. ABIRATERONE ACETATE [Suspect]
     Route: 048
  2. ABIRATERONE ACETATE [Suspect]
     Indication: PROSTATE CANCER METASTATIC
     Route: 048
     Dates: start: 20111110, end: 20120623
  3. PREDNISONE [Suspect]
     Indication: PROSTATE CANCER METASTATIC
     Route: 048
     Dates: start: 20111110, end: 20120623
  4. GOSERELIN [Concomitant]
     Indication: HORMONE THERAPY
     Route: 065
     Dates: start: 20100910

REACTIONS (2)
  - Diarrhoea [Fatal]
  - Septic shock [Unknown]
